FAERS Safety Report 5373951-1 (Version None)
Quarter: 2007Q2

REPORT INFORMATION
  Report Type: 
  Country: None (occurrence: None)
  Receive Date: 20070627
  Receipt Date: 20070615
  Transmission Date: 20071010
  Serious: Yes (Hospitalization, Other)
  Sender: FDA-Public Use
  Company Number: 2007SP012174

PATIENT
  Age: 51 Year
  Sex: Female

DRUGS (2)
  1. PEG-INTRON [Suspect]
     Indication: HEPATITIS C
     Dosage: ; SC
     Route: 058
     Dates: start: 20070518, end: 20070607
  2. RIBAVIRIN [Suspect]
     Indication: HEPATITIS C
     Dosage: ; PO
     Route: 048
     Dates: start: 20070518, end: 20070607

REACTIONS (9)
  - ASTHENIA [None]
  - DEHYDRATION [None]
  - DIZZINESS [None]
  - DYSPNOEA EXERTIONAL [None]
  - HEPATIC ENZYME INCREASED [None]
  - HYPERVENTILATION [None]
  - PANCREATITIS [None]
  - PANIC ATTACK [None]
  - URTICARIA [None]
